FAERS Safety Report 12612167 (Version 2)
Quarter: 2016Q4

REPORT INFORMATION
  Report Type: Spontaneous
  Country: GB (occurrence: GB)
  Receive Date: 20160801
  Receipt Date: 20161128
  Transmission Date: 20170207
  Serious: Yes (Death, Congenital Anomaly)
  Sender: FDA-Public Use
  Company Number: GB-EMD SERONO-8098086

PATIENT

DRUGS (1)
  1. REBIF [Suspect]
     Active Substance: INTERFERON BETA-1A
     Indication: RELAPSING-REMITTING MULTIPLE SCLEROSIS
     Route: 064

REACTIONS (3)
  - Tracheo-oesophageal fistula [Unknown]
  - Foetal exposure during pregnancy [Recovered/Resolved]
  - Foetal death [Fatal]

NARRATIVE: CASE EVENT DATE: 2016
